FAERS Safety Report 6682326-4 (Version None)
Quarter: 2010Q2

REPORT INFORMATION
  Report Type: 
  Country: None (occurrence: None)
  Receive Date: 20100415
  Receipt Date: 20100331
  Transmission Date: 20101027
  Serious: Yes (Death, Hospitalization)
  Sender: FDA-Public Use
  Company Number: GB-RANBAXY-2010RR-32532

PATIENT
  Age: 89 Year
  Sex: Male

DRUGS (5)
  1. PARACETAMOL [Suspect]
     Indication: BACK PAIN
     Dosage: 1 G, QID
     Route: 048
  2. CYPROTERONE ACETATE [Concomitant]
     Indication: PROSTATE CANCER
     Route: 065
  3. DEXTROSE [Concomitant]
     Route: 042
  4. GOSERELIN [Concomitant]
     Indication: PROSTATE CANCER
     Route: 042
  5. SODIUM CHLORIDE [Concomitant]
     Route: 042

REACTIONS (5)
  - CONDITION AGGRAVATED [None]
  - DEHYDRATION [None]
  - HYPERNATRAEMIA [None]
  - RENAL IMPAIRMENT [None]
  - SEPSIS [None]
